FAERS Safety Report 10493314 (Version 1)
Quarter: 2014Q4

REPORT INFORMATION
  Report Type: Spontaneous
  Country: US (occurrence: US)
  Receive Date: 20141002
  Receipt Date: 20141002
  Transmission Date: 20150528
  Serious: No
  Sender: FDA-Public Use
  Company Number: US-GLAXOSMITHKLINE-A1082501A

PATIENT
  Age: 82 Year
  Sex: Female

DRUGS (13)
  1. CATAFLAM [Concomitant]
     Active Substance: DICLOFENAC POTASSIUM
  2. ALBUTEROL. [Concomitant]
     Active Substance: ALBUTEROL
  3. SIMVASTATIN. [Concomitant]
     Active Substance: SIMVASTATIN
  4. COLACE [Concomitant]
     Active Substance: DOCUSATE SODIUM
  5. FISH OIL [Concomitant]
     Active Substance: FISH OIL
  6. ZYRTEC [Concomitant]
     Active Substance: CETIRIZINE HYDROCHLORIDE
  7. ADVAIR HFA [Suspect]
     Active Substance: FLUTICASONE PROPIONATE\SALMETEROL XINAFOATE
     Indication: ASTHMA
     Dosage: 1PUFF TWICE PER DAY
     Route: 055
     Dates: start: 201305
  8. SINEQUAN [Concomitant]
     Active Substance: DOXEPIN HYDROCHLORIDE
  9. PRILOSEC [Concomitant]
     Active Substance: OMEPRAZOLE MAGNESIUM
  10. FLAXSEED [Concomitant]
     Active Substance: FLAX SEED
  11. AZITHROMYCIN [Concomitant]
     Active Substance: AZITHROMYCIN ANHYDROUS
  12. ASPIRIN. [Concomitant]
     Active Substance: ASPIRIN
  13. MULTIVITAMIN [Concomitant]
     Active Substance: VITAMINS

REACTIONS (3)
  - Wheezing [Recovering/Resolving]
  - Feeling abnormal [Unknown]
  - Product quality issue [Unknown]

NARRATIVE: CASE EVENT DATE: 201404
